FAERS Safety Report 14190869 (Version 2)
Quarter: 2017Q4

REPORT INFORMATION
  Report Type: Spontaneous
  Country: US (occurrence: US)
  Receive Date: 20171115
  Receipt Date: 20171208
  Transmission Date: 20180321
  Serious: Yes (Other)
  Sender: FDA-Public Use
  Company Number: US-009507513-1711USA004012

PATIENT
  Age: 54 Year
  Sex: Female

DRUGS (1)
  1. KEYTRUDA [Suspect]
     Active Substance: PEMBROLIZUMAB
     Indication: METASTATIC OCULAR MELANOMA
     Dosage: EVERY 3 WEEKS VIA CONTINUOUS 30-MINUTE INTRAVENOUS INFUSION
     Route: 042

REACTIONS (2)
  - Retinal vasculitis [Not Recovered/Not Resolved]
  - Chorioretinitis [Not Recovered/Not Resolved]
